FAERS Safety Report 16703959 (Version 1)
Quarter: 2019Q3

REPORT INFORMATION
  Report Type: Spontaneous
  Country: US (occurrence: US)
  Receive Date: 20190814
  Receipt Date: 20190814
  Transmission Date: 20191004
  Serious: Yes (Other)
  Sender: FDA-Public Use
  Company Number: US-AMGEN-USASP2019126341

PATIENT
  Sex: Female

DRUGS (1)
  1. PROLIA [Suspect]
     Active Substance: DENOSUMAB
     Indication: OSTEOPOROSIS
     Dosage: UNK
     Route: 065
     Dates: start: 2017, end: 2019

REACTIONS (5)
  - Bone density decreased [Unknown]
  - Arthralgia [Unknown]
  - Spinal laminectomy [Unknown]
  - Drug ineffective [Unknown]
  - Groin pain [Unknown]

NARRATIVE: CASE EVENT DATE: 2019
